FAERS Safety Report 7904677-5 (Version None)
Quarter: 2011Q4

REPORT INFORMATION
  Report Type: 
  Country: None (occurrence: None)
  Receive Date: 20111109
  Receipt Date: 20111101
  Transmission Date: 20120403
  Serious: Yes (Other)
  Sender: FDA-Public Use
  Company Number: GR-GLAXOSMITHKLINE-B0748091A

PATIENT
  Age: 55 Year
  Sex: Female

DRUGS (3)
  1. WELLBUTRIN [Suspect]
     Indication: DEPRESSION
     Route: 048
  2. UNKNOWN [Concomitant]
  3. INSULIN [Concomitant]

REACTIONS (4)
  - LOSS OF CONSCIOUSNESS [None]
  - IRRITABILITY [None]
  - SUICIDAL IDEATION [None]
  - CONSTIPATION [None]
